FAERS Safety Report 7078983-3 (Version None)
Quarter: 2010Q4

REPORT INFORMATION
  Report Type: 
  Country: None (occurrence: None)
  Receive Date: 20101102
  Receipt Date: 20101027
  Transmission Date: 20110411
  Serious: Yes (Hospitalization)
  Sender: FDA-Public Use
  Company Number: DE-ROCHE-691973

PATIENT
  Sex: Female
  Weight: 82 kg

DRUGS (2)
  1. PEGINTERFERON ALFA-2A [Suspect]
     Route: 058
     Dates: start: 20100113, end: 20100301
  2. RIBAVIRIN [Suspect]
     Route: 048
     Dates: start: 20100113, end: 20100301

REACTIONS (1)
  - HAEMOGLOBIN DECREASED [None]
